FAERS Safety Report 9395149 (Version 2)
Quarter: 2013Q3

REPORT INFORMATION
  Report Type: Spontaneous
  Country: DE (occurrence: None)
  Receive Date: 20130705
  Receipt Date: 20130709
  Transmission Date: 20140515
  Serious: Yes (Other)
  Sender: FDA-Public Use
  Company Number: 1307-853

PATIENT
  Sex: Female

DRUGS (3)
  1. EYLEA [Suspect]
     Indication: AGE-RELATED MACULAR DEGENERATION
     Dates: start: 20130117
  2. MELOXICAM (MELOXICAM) [Concomitant]
  3. PANADOL (PARACETAMOL) [Concomitant]

REACTIONS (6)
  - Shock [None]
  - Superficial injury of eye [None]
  - Eye pain [None]
  - Lacrimation increased [None]
  - Panic reaction [None]
  - Visual acuity reduced [None]
